FAERS Safety Report 6403015-7 (Version None)
Quarter: 2009Q4

REPORT INFORMATION
  Report Type: 
  Country: None (occurrence: None)
  Receive Date: 20091016
  Receipt Date: 20091009
  Transmission Date: 20100525
  Serious: Yes (Hospitalization, Other)
  Sender: FDA-Public Use
  Company Number: GB-BAYER-200932151GPV

PATIENT
  Age: 34 Year
  Sex: Male
  Weight: 86 kg

DRUGS (1)
  1. BETAFERON [Suspect]
     Indication: MULTIPLE SCLEROSIS
     Route: 058
     Dates: start: 20090617, end: 20090806

REACTIONS (3)
  - BLOOD GLUCOSE ABNORMAL [None]
  - TYPE 1 DIABETES MELLITUS [None]
  - WEIGHT DECREASED [None]
